FAERS Safety Report 6145413-5 (Version None)
Quarter: 2009Q2

REPORT INFORMATION
  Report Type: 
  Country: None (occurrence: None)
  Receive Date: 20090402
  Receipt Date: 20090317
  Transmission Date: 20091009
  Serious: Yes (Hospitalization)
  Sender: FDA-Public Use
  Company Number: 2009S1002572

PATIENT
  Age: 51 Year
  Sex: Male

DRUGS (8)
  1. PHOSPHOSODA FLAVOR NOT SPECIFIED [Suspect]
     Indication: COLONOSCOPY
     Dosage: 30 ML; TOTAL; PO
     Route: 048
     Dates: start: 20070801, end: 20070801
  2. MULTIVITAMIN /00831701/ [Concomitant]
  3. ASPIRIN CHILDREN [Concomitant]
  4. LABETALOL HCL [Concomitant]
  5. FUROSEMIDE [Concomitant]
  6. OMEPRAZOLE [Concomitant]
  7. AZACITIDINE [Concomitant]
  8. CALCITRIOL [Concomitant]

REACTIONS (3)
  - DIALYSIS [None]
  - INFLUENZA LIKE ILLNESS [None]
  - RENAL FAILURE [None]
